FAERS Safety Report 8848002 (Version 2)
Quarter: 2012Q4

REPORT INFORMATION
  Report Type: 
  Country: US (occurrence: US)
  Receive Date: 20121018
  Receipt Date: 20121108
  Transmission Date: 20130627
  Serious: Yes (Death)
  Sender: FDA-Public Use
  Company Number: PHEH2012US020237

PATIENT
  Sex: Female

DRUGS (8)
  1. EXELON PATCH [Suspect]
     Indication: DEMENTIA ALZHEIMER^S TYPE
     Dosage: 9.5 mg\24hrs
     Route: 062
  2. DIGOXIN [Concomitant]
     Indication: CARDIAC DISORDER
  3. REMERON [Concomitant]
     Indication: ANXIETY
  4. MULTIVITAMINS [Concomitant]
     Indication: SUPPLEMENTATION THERAPY
  5. VITAMIN B12 [Concomitant]
     Indication: SUPPLEMENTATION THERAPY
  6. CALCIUM [Concomitant]
     Indication: SUPPLEMENTATION THERAPY
  7. TYLENOL EXTRA-STRENGTH [Concomitant]
     Indication: PAIN
  8. PEPCID AC [Concomitant]
     Indication: ABDOMINAL DISCOMFORT

REACTIONS (1)
  - Intestinal obstruction [Fatal]
